FAERS Safety Report 24335448 (Version 4)
Quarter: 2024Q4

REPORT INFORMATION
  Report Type: Spontaneous
  Country: DE (occurrence: DE)
  Receive Date: 20240919
  Receipt Date: 20241224
  Transmission Date: 20250115
  Serious: Yes (Hospitalization)
  Sender: NOVARTIS
  Company Number: DE-AMGEN-DEUSP2024175381

PATIENT
  Age: 77 Year
  Sex: Female
  Weight: 62 kg

DRUGS (14)
  1. LETROZOLE [Suspect]
     Active Substance: LETROZOLE
     Indication: Breast cancer
     Dosage: 2.5 MG, QD
     Route: 048
     Dates: start: 20220301
  2. XGEVA [Suspect]
     Active Substance: DENOSUMAB
     Indication: Prophylaxis
     Dosage: 120 MG, QMO
     Route: 058
     Dates: start: 20220406, end: 20240521
  3. PALBOCICLIB [Suspect]
     Active Substance: PALBOCICLIB
     Indication: Breast cancer
     Dosage: 100 MG, QD (ROM DAY 1 TO DAY 21, EVERY 28 DAY CYCLE)
     Route: 048
     Dates: start: 20220407, end: 20240321
  4. PALBOCICLIB [Suspect]
     Active Substance: PALBOCICLIB
     Dosage: 125 MG, QD (ROM DAY 1 TO DAY 21, EVERY 28 DAY CYCLE)
     Route: 048
     Dates: start: 20220301, end: 20220321
  5. PALBOCICLIB [Suspect]
     Active Substance: PALBOCICLIB
     Dosage: 75 MG, QD (ROM DAY 1 TO DAY 21, EVERY 28 DAY CYCLE)
     Route: 048
     Dates: start: 20240329, end: 20240712
  6. LEVOTHYROXINE [Concomitant]
     Active Substance: LEVOTHYROXINE
     Indication: Hypothyroidism
     Dosage: UNK
     Route: 048
     Dates: start: 2008
  7. METFORMIN [Concomitant]
     Active Substance: METFORMIN HYDROCHLORIDE
     Indication: Diabetes mellitus
     Dosage: UNK
     Route: 048
     Dates: start: 2008
  8. D MANNOSE [Concomitant]
     Indication: Prophylaxis
     Dosage: UNK
     Route: 048
  9. AMLODIPINE BESYLATE [Concomitant]
     Active Substance: AMLODIPINE BESYLATE
     Indication: Hypertension
     Dosage: UNK
     Route: 048
     Dates: start: 2003
  10. CITALOPRAM [Concomitant]
     Active Substance: CITALOPRAM
     Indication: Prophylaxis
     Dosage: UNK
     Route: 048
     Dates: start: 2008
  11. FERROUS GLYCINE SULFATE [Concomitant]
     Active Substance: FERROUS GLYCINE SULFATE
     Indication: Product used for unknown indication
     Dosage: UNK
     Route: 048
     Dates: start: 20220323
  12. RAMIPRIL [Concomitant]
     Active Substance: RAMIPRIL
     Indication: Pulmonary embolism
     Dosage: UNK
     Route: 048
     Dates: start: 2003
  13. METOPROLOL [Concomitant]
     Active Substance: METOPROLOL
     Indication: Hypertension
     Dosage: UNK
     Route: 048
     Dates: start: 2003
  14. EDOXABAN TOSYLATE [Concomitant]
     Active Substance: EDOXABAN TOSYLATE
     Indication: Pulmonary embolism
     Dosage: UNK
     Route: 048
     Dates: start: 200301

REACTIONS (1)
  - Osteonecrosis of jaw [Recovering/Resolving]

NARRATIVE: CASE EVENT DATE: 20240619
